FAERS Safety Report 19503037 (Version 1)
Quarter: 2021Q3

REPORT INFORMATION
  Report Type: Spontaneous
  Country: US (occurrence: US)
  Receive Date: 20210707
  Receipt Date: 20210707
  Transmission Date: 20211014
  Serious: Yes (Hospitalization, Other)
  Sender: FDA-Public Use
  Company Number: US-ASTRAZENECA-2021A587689

PATIENT
  Age: 23304 Day
  Sex: Female
  Weight: 71.2 kg

DRUGS (5)
  1. VITAMIN D3 [Concomitant]
     Active Substance: CHOLECALCIFEROL
     Indication: BREAST CANCER
     Dosage: 2000 MGS
  2. SINGULAIR [Concomitant]
     Active Substance: MONTELUKAST SODIUM
  3. CALCIUM [Concomitant]
     Active Substance: CALCIUM
     Indication: BREAST CANCER
     Dosage: 600/DAY
  4. BUDESONIDE AND FORMOTEROL [Suspect]
     Active Substance: BUDESONIDE\FORMOTEROL
     Indication: ASTHMA
     Dosage: UNKNOWN UNKNOWN
     Route: 055
     Dates: start: 202103, end: 202104
  5. BUDESONIDE AND FORMOTEROL [Suspect]
     Active Substance: BUDESONIDE\FORMOTEROL
     Indication: ASTHMA
     Dosage: GENERIC SYMBICORT/ UNKNOWN UNKNOWN
     Route: 055

REACTIONS (4)
  - Respiratory failure [Unknown]
  - Asthma [Unknown]
  - Dyspnoea [Unknown]
  - Tachycardia [Unknown]

NARRATIVE: CASE EVENT DATE: 20210314
